FAERS Safety Report 7670822-2 (Version None)
Quarter: 2011Q3

REPORT INFORMATION
  Report Type: 
  Country: None (occurrence: None)
  Receive Date: 20110809
  Receipt Date: 20110728
  Transmission Date: 20111222
  Serious: Yes (Hospitalization)
  Sender: FDA-Public Use
  Company Number: BR-US-EMD SERONO, INC.-230138K09BRA

PATIENT
  Sex: Female

DRUGS (7)
  1. REBIF [Suspect]
     Indication: RELAPSING-REMITTING MULTIPLE SCLEROSIS
     Dates: start: 20061020
  2. REBIF [Suspect]
     Dates: start: 20110316
  3. AMITRIPTYLINE HCL [Concomitant]
  4. CLONAZEPAM [Concomitant]
  5. CAPTOPRIL [Concomitant]
  6. DICLOFENAC SODIUM [Concomitant]
  7. TEGRETOL [Concomitant]

REACTIONS (3)
  - MUSCULOSKELETAL PAIN [None]
  - URINARY TRACT INFECTION [None]
  - BONE LESION [None]
